FAERS Safety Report 8915480 (Version 1)
Quarter: 2012Q4

REPORT INFORMATION
  Report Type: 
  Country: US (occurrence: US)
  Receive Date: 20121119
  Receipt Date: 20121119
  Transmission Date: 20130627
  Serious: No
  Sender: FDA-Public Use
  Company Number: US-PFIZER INC-2012284401

PATIENT
  Age: 86 Year
  Sex: Female
  Weight: 58.05 kg

DRUGS (1)
  1. TOVIAZ [Suspect]
     Indication: OVERACTIVE BLADDER
     Dosage: 4 mg, daily
     Route: 048
     Dates: start: 201210

REACTIONS (1)
  - Gastric disorder [Not Recovered/Not Resolved]
